FAERS Safety Report 13889683 (Version 1)
Quarter: 2017Q3

REPORT INFORMATION
  Report Type: Spontaneous
  Country: US (occurrence: US)
  Receive Date: 20170822
  Receipt Date: 20170822
  Transmission Date: 20171127
  Serious: No
  Sender: FDA-Public Use
  Company Number: US-ROCHE-1538422

PATIENT
  Age: 41 Year
  Sex: Female

DRUGS (1)
  1. TOCILIZUMAB. [Suspect]
     Active Substance: TOCILIZUMAB
     Indication: PRODUCT USED FOR UNKNOWN INDICATION
     Dosage: DOSE WAS FOR INJECTION EVERY OTHER WEEK
     Route: 058
     Dates: start: 20150108

REACTIONS (3)
  - Blood immunoglobulin E increased [Unknown]
  - Rash [Unknown]
  - Hypersensitivity [Unknown]
